FAERS Safety Report 9664816 (Version 2)
Quarter: 2013Q4

REPORT INFORMATION
  Report Type: Report from Study
  Country: JP (occurrence: JP)
  Receive Date: 20131101
  Receipt Date: 20131119
  Transmission Date: 20140711
  Serious: Yes (Death, Other)
  Sender: FDA-Public Use
  Company Number: JP-TAKEDA-2013TJP002351

PATIENT
  Age: 75 Year
  Sex: Male

DRUGS (7)
  1. LANSOPRAZOLE [Suspect]
     Indication: PROPHYLAXIS AGAINST GASTROINTESTINAL ULCER
     Dosage: 15 MG, QD
     Route: 048
     Dates: start: 20120822, end: 20130531
  2. BAYASPIRIN [Concomitant]
     Indication: THROMBOSIS PROPHYLAXIS
     Dosage: 100 MG, 1 DAYS
     Route: 048
     Dates: end: 20130531
  3. ALFAROL [Concomitant]
     Dosage: 0.25 ?G, 1 DAYS
     Route: 048
  4. FEBURIC [Concomitant]
     Dosage: 20 MG, 1 DAYS
     Route: 048
  5. LENDORMIN [Concomitant]
     Dosage: 0.25 MG, DAYS
     Route: 048
  6. CELECOX [Concomitant]
     Dosage: 200 MG, 1 DAYS
     Route: 048
  7. REBAMIPIDE [Concomitant]
     Dosage: 100 MG, 1 DAYS
     Route: 048

REACTIONS (1)
  - Sepsis [Fatal]
